FAERS Safety Report 9722465 (Version 1)
Quarter: 2013Q4

REPORT INFORMATION
  Report Type: Spontaneous
  Country: US (occurrence: US)
  Receive Date: 20131202
  Receipt Date: 20131202
  Transmission Date: 20140711
  Serious: Yes (Other)
  Sender: FDA-Public Use
  Company Number: US-AMGEN-USASP2013083112

PATIENT
  Age: 95 Year
  Sex: Male

DRUGS (1)
  1. ARANESP [Suspect]
     Indication: RENAL FAILURE CHRONIC
     Dosage: 300 MUG, ONCE EVERY FEW WEEKS
     Route: 065

REACTIONS (4)
  - Osteomyelitis [Recovering/Resolving]
  - Skin infection [Recovering/Resolving]
  - Prostatic operation [Unknown]
  - Renal pain [Recovering/Resolving]
